FAERS Safety Report 4383561-0 (Version None)
Quarter: 2004Q2

REPORT INFORMATION
  Report Type: 
  Country: None (occurrence: None)
  Receive Date: 20040614
  Receipt Date: 20030527
  Transmission Date: 20050107
  Serious: Yes (Hospitalization, Other)
  Sender: FDA-Public Use
  Company Number: 2003158952US

PATIENT
  Age: 74 Year
  Sex: Female

DRUGS (1)
  1. ZYVOX [Suspect]
     Indication: OSTEOMYELITIS
     Dosage: UNK, IV
     Route: 042
     Dates: start: 20030301, end: 20030501

REACTIONS (1)
  - PANCYTOPENIA [None]
